FAERS Safety Report 7429576-7 (Version None)
Quarter: 2011Q2

REPORT INFORMATION
  Report Type: 
  Country: None (occurrence: None)
  Receive Date: 20110421
  Receipt Date: 20110419
  Transmission Date: 20111010
  Serious: Yes (Congenital Anomaly)
  Sender: FDA-Public Use
  Company Number: A0923799A

PATIENT
  Sex: Female

DRUGS (1)
  1. PAXIL [Suspect]
     Route: 048

REACTIONS (4)
  - ATRIAL SEPTAL DEFECT [None]
  - PULMONARY VALVE STENOSIS CONGENITAL [None]
  - DRUG EXPOSURE DURING PREGNANCY [None]
  - NERVOUS SYSTEM DISORDER [None]
